FAERS Safety Report 11060853 (Version 1)
Quarter: 2015Q2

REPORT INFORMATION
  Report Type: Spontaneous
  Country: JP (occurrence: JP)
  Receive Date: 20150424
  Receipt Date: 20150424
  Transmission Date: 20150821
  Serious: Yes (Death, Hospitalization)
  Sender: FDA-Public Use
  Company Number: PHHY2015JP047994

PATIENT
  Age: 51 Year
  Sex: Female

DRUGS (4)
  1. OXALIPLATIN. [Suspect]
     Active Substance: OXALIPLATIN
     Indication: COLON CANCER
     Route: 065
     Dates: start: 20071128
  2. 5 FLUORO URACIL [Concomitant]
     Active Substance: FLUOROURACIL
     Indication: COLON CANCER
     Route: 065
     Dates: start: 20071128
  3. HEPARIN [Suspect]
     Active Substance: HEPARIN SODIUM
     Indication: FLUSHING
     Route: 065
  4. FOLINIC ACID [Concomitant]
     Active Substance: LEUCOVORIN
     Indication: COLON CANCER
     Route: 065
     Dates: start: 20071128

REACTIONS (8)
  - Helicobacter test positive [Unknown]
  - Thrombocytopenia [Fatal]
  - Splenomegaly [Unknown]
  - Megakaryocytes [Unknown]
  - Hyperplasia [Unknown]
  - Immune thrombocytopenic purpura [Fatal]
  - Ecchymosis [Fatal]
  - Heparin-induced thrombocytopenia [Unknown]

NARRATIVE: CASE EVENT DATE: 20071129
